FAERS Safety Report 8886554 (Version 6)
Quarter: 2013Q2

REPORT INFORMATION
  Report Type: Spontaneous
  Country: PR (occurrence: PR)
  Receive Date: 20121105
  Receipt Date: 20130513
  Transmission Date: 20140414
  Serious: Yes (Death, Hospitalization, Other)
  Sender: FDA-Public Use
  Company Number: PR-ABBOTT-12P-131-1001521-00

PATIENT
  Age: 72 Year
  Sex: Female
  Weight: 72.64 kg

DRUGS (7)
  1. HUMIRA [Suspect]
     Indication: RHEUMATOID ARTHRITIS
     Route: 058
     Dates: end: 201209
  2. HUMIRA [Suspect]
     Route: 058
     Dates: start: 201212, end: 201212
  3. INDOCIN [Concomitant]
     Indication: RHEUMATOID ARTHRITIS
     Route: 048
     Dates: end: 201302
  4. PREDNISONE [Concomitant]
     Indication: RHEUMATOID ARTHRITIS
     Route: 048
     Dates: end: 201302
  5. DIOVAN [Concomitant]
     Indication: HYPERTENSION
     Route: 048
     Dates: end: 201302
  6. NOVOLIN [Concomitant]
     Indication: DIABETES MELLITUS
     Dosage: 70/30 - 30 UNITS DAILY
     Route: 058
     Dates: end: 201302
  7. REUMAKIT [Concomitant]
     Indication: SUPPLEMENTATION THERAPY
     Route: 048

REACTIONS (7)
  - Sepsis [Fatal]
  - Coagulopathy [Recovering/Resolving]
  - Hip fracture [Recovered/Resolved]
  - Fall [Recovered/Resolved]
  - Brain operation [Recovered/Resolved]
  - Nasopharyngitis [Recovered/Resolved]
  - Dyspnoea [Recovered/Resolved]
